FAERS Safety Report 14316358 (Version 2)
Quarter: 2018Q1

REPORT INFORMATION
  Report Type: Spontaneous
  Country: US (occurrence: US)
  Receive Date: 20171222
  Receipt Date: 20180204
  Transmission Date: 20180509
  Serious: Yes (Other)
  Sender: FDA-Public Use
  Company Number: US-JNJFOC-20171212943

PATIENT
  Age: 26 Year
  Sex: Female

DRUGS (1)
  1. NEUTROGENA REVITALIZING LIP BALM SPF 20 - FRESH PLUM 60 [Suspect]
     Active Substance: OCTINOXATE\OXYBENZONE
     Indication: PRODUCT USED FOR UNKNOWN INDICATION
     Dosage: APPLIED ONE TO TWO TIMES PER DAY
     Route: 061
     Dates: start: 201707, end: 20171015

REACTIONS (4)
  - Application site erythema [Recovered/Resolved]
  - Application site papules [Recovered/Resolved]
  - Swelling face [Recovered/Resolved]
  - Pain [Recovered/Resolved]

NARRATIVE: CASE EVENT DATE: 20170701
